FAERS Safety Report 5083445-9 (Version None)
Quarter: 2006Q3

REPORT INFORMATION
  Report Type: 
  Country: None (occurrence: None)
  Receive Date: 20060818
  Receipt Date: 20060809
  Transmission Date: 20061208
  Serious: Yes (Death, Other)
  Sender: FDA-Public Use
  Company Number: PHEH2006US10160

PATIENT
  Age: 75 Year
  Sex: Male

DRUGS (5)
  1. ZOMETA [Suspect]
     Indication: PROSTATE CANCER METASTATIC
     Dosage: 4MG QMO
     Dates: start: 20030801, end: 20040401
  2. ACTONEL [Concomitant]
     Indication: PROSTATE CANCER METASTATIC
     Dosage: 35MG Q4WK
  3. TAXOTERE [Concomitant]
     Indication: PROSTATE CANCER METASTATIC
     Dosage: 35MG/M2 QWK
     Route: 042
     Dates: start: 20030520
  4. KYTRIL [Concomitant]
     Indication: PROSTATE CANCER METASTATIC
     Dosage: 1MG QWK
     Route: 042
     Dates: start: 20030520
  5. HEXADROL [Concomitant]
     Indication: PROSTATE CANCER
     Dosage: 20MG QWK
     Route: 042
     Dates: start: 20030520

REACTIONS (8)
  - ACTINOMYCOSIS [None]
  - BONE DEBRIDEMENT [None]
  - BONE DISORDER [None]
  - GINGIVITIS [None]
  - MALIGNANT NEOPLASM PROGRESSION [None]
  - OSTEOMYELITIS [None]
  - OSTEONECROSIS [None]
  - PAIN [None]
